FAERS Safety Report 9072008 (Version 1)
Quarter: 2013Q1

REPORT INFORMATION
  Report Type: Report from Study
  Country: US (occurrence: US)
  Receive Date: 20130129
  Receipt Date: 20130129
  Transmission Date: 20140127
  Serious: No
  Sender: FDA-Public Use
  Company Number: US-ABBOTT-12P-163-0929601-00

PATIENT
  Age: 57 Year
  Sex: Female

DRUGS (12)
  1. HUMIRA 40 MG/0.8 ML PEN [Suspect]
     Indication: CROHN^S DISEASE
     Route: 058
     Dates: start: 20111230
  2. HUMIRA 40 MG/0.8 ML PEN [Suspect]
     Route: 058
     Dates: start: 20120418
  3. AMOXICILLIN [Suspect]
     Indication: SINUSITIS
     Dates: start: 20120412, end: 20120422
  4. ACTONEL [Concomitant]
     Indication: OSTEOPENIA
     Route: 048
  5. AZATHIOPRINE [Concomitant]
     Indication: CROHN^S DISEASE
     Dosage: 125MG = 2.5 - 50MG TABS EVERY MORNING
  6. FOLIC ACID [Concomitant]
     Indication: PRODUCT USED FOR UNKNOWN INDICATION
     Dosage: 1MG DAILY
  7. CALTRATE WITH VITAMIN D [Concomitant]
     Indication: PRODUCT USED FOR UNKNOWN INDICATION
     Dosage: 600MG ONE OR TWO DAILY
  8. COLESTIPOL [Concomitant]
     Indication: CHOLESTEROL ABSORPTION EFFICIENCY DECREASED
     Dosage: 2GM = 2 - 1GM TABS AT BEDTIME
  9. CLARITIN [Concomitant]
     Indication: HYPERSENSITIVITY
  10. CLARITIN [Concomitant]
     Indication: MIDDLE EAR EFFUSION
  11. B-12 [Concomitant]
     Indication: PRODUCT USED FOR UNKNOWN INDICATION
  12. IMODIUM [Concomitant]
     Indication: PRODUCT USED FOR UNKNOWN INDICATION

REACTIONS (11)
  - Malaise [Not Recovered/Not Resolved]
  - Nasopharyngitis [Recovering/Resolving]
  - Asthenia [Recovering/Resolving]
  - Ear pain [Recovering/Resolving]
  - Hearing impaired [Recovering/Resolving]
  - Lymphadenopathy [Unknown]
  - Sinusitis [Recovering/Resolving]
  - Malaise [Recovering/Resolving]
  - Diarrhoea [Recovering/Resolving]
  - Asthenia [Recovering/Resolving]
  - Inappropriate schedule of drug administration [Recovering/Resolving]
